FAERS Safety Report 12194472 (Version 8)
Quarter: 2023Q4

REPORT INFORMATION
  Report Type: Report from Study
  Country: TH (occurrence: TH)
  Receive Date: 20160321
  Receipt Date: 20231121
  Transmission Date: 20240110
  Serious: Yes (Life-Threatening, Hospitalization, Other)
  Sender: FDA-Public Use
  Company Number: PHHO2016TH004060

PATIENT
  Age: 45 Year
  Sex: Male
  Weight: 77 kg

DRUGS (17)
  1. TASIGNA [Suspect]
     Active Substance: NILOTINIB
     Indication: Philadelphia positive chronic myeloid leukaemia
     Dosage: 400 MG, BID
     Route: 048
     Dates: start: 20110725, end: 20160312
  2. TASIGNA [Suspect]
     Active Substance: NILOTINIB
     Dosage: 400 MG, BID
     Route: 048
     Dates: start: 20160314
  3. TASIGNA [Suspect]
     Active Substance: NILOTINIB
     Dosage: 400 MG, BID
     Route: 048
     Dates: start: 20160725, end: 20160826
  4. TASIGNA [Suspect]
     Active Substance: NILOTINIB
     Dosage: UNK
     Route: 048
     Dates: start: 20160828
  5. TASIGNA [Suspect]
     Active Substance: NILOTINIB
     Dosage: 400 MG, BID
     Route: 048
     Dates: start: 20161011
  6. TASIGNA [Suspect]
     Active Substance: NILOTINIB
     Dosage: 400 MG, BID
     Route: 048
     Dates: end: 20170202
  7. TASIGNA [Suspect]
     Active Substance: NILOTINIB
     Dosage: 400 MG, BID
     Route: 048
     Dates: start: 20170204
  8. AMLODIPINE [Concomitant]
     Active Substance: AMLODIPINE BESYLATE
     Indication: Hypertension
     Dosage: 10 MG, QD
     Route: 048
     Dates: start: 20150330, end: 20160311
  9. AMLODIPINE [Concomitant]
     Active Substance: AMLODIPINE BESYLATE
     Dosage: 10 MG, QD
     Route: 048
     Dates: end: 20170202
  10. ATENOLOL [Concomitant]
     Active Substance: ATENOLOL
     Indication: Hypertension
     Dosage: 100 MG, QD
     Route: 048
     Dates: start: 2006, end: 20160311
  11. ATENOLOL [Concomitant]
     Active Substance: ATENOLOL
     Dosage: 100 MG, QD
     Route: 048
     Dates: end: 20170202
  12. METFORMIN [Concomitant]
     Active Substance: METFORMIN HYDROCHLORIDE
     Indication: Diabetes mellitus
     Dosage: 500 MG, QD
     Route: 048
     Dates: start: 20141013, end: 20160311
  13. METFORMIN [Concomitant]
     Active Substance: METFORMIN HYDROCHLORIDE
     Dosage: 500 MG, BID
     Route: 048
     Dates: end: 20170202
  14. MINERALS\VITAMINS [Concomitant]
     Active Substance: MINERALS\VITAMINS
     Indication: Product used for unknown indication
     Dosage: 2000 U, QD
     Route: 048
     Dates: start: 20150430, end: 20160826
  15. RANITIDINE [Concomitant]
     Active Substance: RANITIDINE
     Indication: Dyspepsia
     Dosage: 150 MG, QD
     Route: 048
     Dates: start: 20151214, end: 20160826
  16. CETIRIZINE HYDROCHLORIDE [Concomitant]
     Active Substance: CETIRIZINE HYDROCHLORIDE
     Indication: Product used for unknown indication
     Dosage: 10 MG, QD
     Route: 048
     Dates: start: 20151214, end: 20160826
  17. FERROUS SULFATE [Concomitant]
     Active Substance: FERROUS SULFATE
     Indication: Product used for unknown indication
     Dosage: 1 DF, QD
     Route: 048
     Dates: start: 20160822, end: 20160826

REACTIONS (14)
  - Acute coronary syndrome [Recovering/Resolving]
  - Coronary artery stenosis [Unknown]
  - Diabetes mellitus [Unknown]
  - Myocardial infarction [Unknown]
  - Loss of consciousness [Unknown]
  - Cardiac arrest [Recovering/Resolving]
  - Myocardial ischaemia [Recovered/Resolved]
  - Dyspnoea [Recovered/Resolved]
  - Chest discomfort [Unknown]
  - Cardiac failure congestive [Recovered/Resolved]
  - Influenza [Recovered/Resolved]
  - Infection [Recovered/Resolved]
  - Acute coronary syndrome [Recovered/Resolved]
  - Cardiac failure congestive [Recovered/Resolved]

NARRATIVE: CASE EVENT DATE: 20160311
